FAERS Safety Report 7000371-6 (Version None)
Quarter: 2010Q3

REPORT INFORMATION
  Report Type: 
  Country: None (occurrence: None)
  Receive Date: 20100920
  Receipt Date: 20091103
  Transmission Date: 20110219
  Serious: No
  Sender: FDA-Public Use
  Company Number: US-ASTRAZENECA-2009SE15690

PATIENT
  Age: 28 Year
  Sex: Female
  Weight: 81.6 kg

DRUGS (3)
  1. SEROQUEL [Suspect]
     Indication: SLEEP DISORDER
     Route: 048
     Dates: start: 20010101, end: 20080101
  2. LAMICTAL [Concomitant]
  3. BUPROPION [Concomitant]

REACTIONS (2)
  - OBESITY [None]
  - TYPE 1 DIABETES MELLITUS [None]
